FAERS Safety Report 13937794 (Version 1)
Quarter: 2017Q3

REPORT INFORMATION
  Report Type: Spontaneous
  Country: US (occurrence: US)
  Receive Date: 20170905
  Receipt Date: 20170905
  Transmission Date: 20171127
  Serious: No
  Sender: FDA-Public Use
  Company Number: US-BAYER-2017-170351

PATIENT
  Age: 69 Year
  Sex: Male
  Weight: 122.45 kg

DRUGS (1)
  1. ALEVE [Suspect]
     Active Substance: NAPROXEN SODIUM
     Indication: SINUS HEADACHE
     Dosage: 2 DF, UNK
     Route: 048

REACTIONS (1)
  - Urticaria [Recovered/Resolved]
